FAERS Safety Report 10681462 (Version 1)
Quarter: 2014Q4

REPORT INFORMATION
  Report Type: Spontaneous
  Country: IT (occurrence: IT)
  Receive Date: 20141230
  Receipt Date: 20141230
  Transmission Date: 20150529
  Serious: Yes (Other)
  Sender: FDA-Public Use
  Company Number: IT-ACCORD-027692

PATIENT
  Age: 45 Year
  Sex: Male

DRUGS (4)
  1. RIVOTRIL [Suspect]
     Active Substance: CLONAZEPAM
     Dates: start: 20140603, end: 20140603
  2. TOLEP [Suspect]
     Active Substance: OXCARBAZEPINE
     Dates: start: 20140603, end: 20140603
  3. QUETIAPINE [Suspect]
     Active Substance: QUETIAPINE
     Dates: start: 20140603, end: 20140603
  4. TALOFEN [Suspect]
     Active Substance: PROMAZINE HYDROCHLORIDE
     Dates: start: 20140603, end: 20140603

REACTIONS (3)
  - Drug abuse [Unknown]
  - Confusional state [Recovering/Resolving]
  - Intentional self-injury [Unknown]

NARRATIVE: CASE EVENT DATE: 20140603
